FAERS Safety Report 16874249 (Version 2)
Quarter: 2019Q4

REPORT INFORMATION
  Report Type: Report from Study
  Country: CA (occurrence: CA)
  Receive Date: 20191001
  Receipt Date: 20191105
  Transmission Date: 20200122
  Serious: Yes (Other)
  Sender: FDA-Public Use
  Company Number: CA-GLAXOSMITHKLINE-CA2019AMR150131

PATIENT
  Sex: Female
  Weight: 64 kg

DRUGS (2)
  1. MEPOLIZUMAB [Suspect]
     Active Substance: MEPOLIZUMAB
     Indication: ASTHMA
     Dosage: 100 MG, Z, 1 MONTH
     Route: 042
     Dates: start: 20181019
  2. MEPOLIZUMAB [Suspect]
     Active Substance: MEPOLIZUMAB
     Dosage: 100 MG, UNK,MONTHLY
     Route: 042

REACTIONS (5)
  - Pyrexia [Recovered/Resolved]
  - Uterine cancer [Unknown]
  - Chills [Unknown]
  - Infection [Unknown]
  - Endometrial thickening [Unknown]
